FAERS Safety Report 9153549 (Version 2)
Quarter: 2013Q1

REPORT INFORMATION
  Report Type: Spontaneous
  Country: JP (occurrence: JP)
  Receive Date: 20130311
  Receipt Date: 20130314
  Transmission Date: 20140127
  Serious: Yes (Hospitalization)
  Sender: FDA-Public Use
  Company Number: JP-VERTEX PHARMACEUTICALS INC.-2013-002954

PATIENT
  Age: 65 Year
  Sex: Female

DRUGS (4)
  1. TELAVIC [Suspect]
     Dosage: 2250 MG, QD
     Route: 048
     Dates: start: 20121203, end: 20130224
  2. RIBAVIRIN [Suspect]
     Indication: HEPATITIS C
     Dosage: 600 MG, QD
     Route: 048
     Dates: start: 20121203, end: 20130218
  3. RIBAVIRIN [Suspect]
     Dosage: 400 MG, QD
     Route: 048
     Dates: start: 20130219, end: 20130224
  4. PEGINTERFERON ALFA-2B [Suspect]
     Dosage: 100 ?G/KG, UNK
     Route: 058
     Dates: start: 20121203, end: 20130218

REACTIONS (3)
  - Anaemia [Not Recovered/Not Resolved]
  - Decreased appetite [Recovered/Resolved]
  - Face oedema [Recovered/Resolved]
